FAERS Safety Report 8955994 (Version 1)
Quarter: 2012Q4

REPORT INFORMATION
  Report Type: 
  Country: CA (occurrence: CA)
  Receive Date: 20121210
  Receipt Date: 20121210
  Transmission Date: 20130627
  Serious: Yes (Hospitalization)
  Sender: FDA-Public Use
  Company Number: CA-ELI_LILLY_AND_COMPANY-CA201211008745

PATIENT
  Age: 40 Year
  Sex: Female

DRUGS (4)
  1. ZYPREXA ZYDIS [Suspect]
     Indication: SCHIZOPHRENIA
     Dosage: 20 mg, UNK
  2. ZYPREXA ZYDIS [Suspect]
     Dosage: 15 mg, UNK
  3. ZYPREXA ZYDIS [Suspect]
     Dosage: 10 mg, UNK
  4. ZYPREXA ZYDIS [Suspect]
     Dosage: 20 mg, UNK

REACTIONS (4)
  - Schizophrenia [Unknown]
  - Restless legs syndrome [Unknown]
  - Drug ineffective [Unknown]
  - Intentional drug misuse [Unknown]
